FAERS Safety Report 6511362-3 (Version None)
Quarter: 2009Q4

REPORT INFORMATION
  Report Type: 
  Country: None (occurrence: None)
  Receive Date: 20091222
  Receipt Date: 20090304
  Transmission Date: 20100525
  Serious: No
  Sender: FDA-Public Use
  Company Number: US-ASTRAZENECA-2009UW05873

PATIENT
  Age: 61 Year
  Sex: Female
  Weight: 104.3 kg

DRUGS (3)
  1. CRESTOR [Suspect]
     Route: 048
     Dates: start: 20070101, end: 20090303
  2. LOTREL [Concomitant]
     Indication: HYPERTENSION
  3. AMBIEN [Concomitant]
     Indication: SLEEP DISORDER
     Dosage: PRN

REACTIONS (7)
  - ASTHENIA [None]
  - DIZZINESS [None]
  - FEELING HOT [None]
  - INSOMNIA [None]
  - MUSCLE SPASMS [None]
  - MUSCULOSKELETAL PAIN [None]
  - MYALGIA [None]
